FAERS Safety Report 5871987-5 (Version None)
Quarter: 2008Q3

REPORT INFORMATION
  Report Type: 
  Country: None (occurrence: None)
  Receive Date: 20080902
  Receipt Date: 20080813
  Transmission Date: 20090109
  Serious: Yes (Hospitalization)
  Sender: FDA-Public Use
  Company Number: 2008EU001636

PATIENT

DRUGS (1)
  1. FK506 - OINTMENT (TACROLIMUS OINTMENT) OINTMENT [Suspect]
     Indication: DERMATITIS ATOPIC
     Dosage: /D

REACTIONS (1)
  - INFLUENZA [None]
